APPROVED DRUG PRODUCT: REYATAZ
Active Ingredient: ATAZANAVIR SULFATE
Strength: EQ 150MG BASE **Federal Register determination that product was not discontinued or withdrawn for safety or effectiveness reasons**
Dosage Form/Route: CAPSULE;ORAL
Application: N021567 | Product #002
Applicant: BRISTOL MYERS SQUIBB CO
Approved: Jun 20, 2003 | RLD: Yes | RS: No | Type: DISCN